FAERS Safety Report 22611513 (Version 1)
Quarter: 2023Q2

REPORT INFORMATION
  Report Type: Spontaneous
  Country: US (occurrence: US)
  Receive Date: 20230616
  Receipt Date: 20230616
  Transmission Date: 20230721
  Serious: Yes (Hospitalization, Other)
  Sender: FDA-Public Use
  Company Number: US-BRISTOL-MYERS SQUIBB COMPANY-2023-083974

PATIENT
  Age: 78 Year
  Sex: Female

DRUGS (1)
  1. REVLIMID [Suspect]
     Active Substance: LENALIDOMIDE
     Indication: Plasma cell myeloma in remission
     Dosage: ONCE DAILY FOR 21 DAYS ON AND 7 DAYS OFF.
     Route: 048
     Dates: start: 201808

REACTIONS (8)
  - Urinary tract infection [Unknown]
  - Fall [Unknown]
  - Hip fracture [Unknown]
  - Chest pain [Unknown]
  - Anxiety [Unknown]
  - Alopecia [Unknown]
  - Brain fog [Unknown]
  - Tremor [Unknown]
